FAERS Safety Report 19456707 (Version 1)
Quarter: 2021Q2

REPORT INFORMATION
  Report Type: Spontaneous
  Country: IT (occurrence: IT)
  Receive Date: 20210624
  Receipt Date: 20210624
  Transmission Date: 20210717
  Serious: Yes (Hospitalization)
  Sender: FDA-Public Use
  Company Number: IT-UNICHEM PHARMACEUTICALS (USA) INC-UCM202106-000558

PATIENT
  Age: 68 Year
  Sex: Male

DRUGS (14)
  1. VALSARTAN. [Suspect]
     Active Substance: VALSARTAN
  2. VALSARTAN. [Suspect]
     Active Substance: VALSARTAN
  3. SACUBITRIL [Suspect]
     Active Substance: SACUBITRIL
     Indication: CARDIAC FAILURE
  4. FUROSEMIDE. [Concomitant]
     Active Substance: FUROSEMIDE
     Indication: PRODUCT USED FOR UNKNOWN INDICATION
  5. SACUBITRIL [Suspect]
     Active Substance: SACUBITRIL
  6. EMPAGLIFLOZIN [Suspect]
     Active Substance: EMPAGLIFLOZIN
     Indication: TYPE 2 DIABETES MELLITUS
  7. SACUBITRIL [Suspect]
     Active Substance: SACUBITRIL
  8. FUROSEMIDE. [Concomitant]
     Active Substance: FUROSEMIDE
     Dosage: REDUCED FUROSEMIDE TO 25 MG PER DIE.
  9. VALSARTAN. [Suspect]
     Active Substance: VALSARTAN
     Indication: CARDIAC FAILURE
  10. METFORMIN [Concomitant]
     Active Substance: METFORMIN HYDROCHLORIDE
     Dosage: 1500 MG
  11. FUROSEMIDE. [Concomitant]
     Active Substance: FUROSEMIDE
     Dosage: 25 MG, ONE TABLET THREE TIMES WEEK
  12. POTASSIUM CANREONATE [Concomitant]
     Indication: PRODUCT USED FOR UNKNOWN INDICATION
     Dosage: 25 MG/DIE
  13. METFORMIN [Concomitant]
     Active Substance: METFORMIN HYDROCHLORIDE
     Indication: TYPE 2 DIABETES MELLITUS
     Dosage: 1000 MG/DIE
  14. POTASSIUM CANREONATE [Concomitant]
     Dosage: 50 MG

REACTIONS (7)
  - Fatigue [Recovering/Resolving]
  - Hypotension [Recovering/Resolving]
  - Weight decreased [Recovering/Resolving]
  - Hyperkalaemia [Recovering/Resolving]
  - Nausea [Recovering/Resolving]
  - Metabolic acidosis [Recovering/Resolving]
  - Renal impairment [Recovering/Resolving]
